FAERS Safety Report 5710688-0 (Version None)
Quarter: 2008Q2

REPORT INFORMATION
  Report Type: 
  Country: None (occurrence: None)
  Receive Date: 20080420
  Receipt Date: 20080408
  Transmission Date: 20081010
  Serious: Yes (Other)
  Sender: FDA-Public Use
  Company Number: PHHY2008AR05093

PATIENT
  Age: 79 Year
  Sex: Female

DRUGS (1)
  1. DIOVAN [Suspect]
     Indication: HYPERTENSION
     Dosage: 80 MG, QD
     Route: 048
     Dates: start: 20021108

REACTIONS (5)
  - DIPLOPIA [None]
  - DYSPHAGIA [None]
  - EYE MOVEMENT DISORDER [None]
  - MYASTHENIA GRAVIS [None]
  - SPEECH DISORDER [None]
